FAERS Safety Report 12978994 (Version 1)
Quarter: 2016Q4

REPORT INFORMATION
  Report Type: Spontaneous
  Country: ES (occurrence: ES)
  Receive Date: 20161128
  Receipt Date: 20161128
  Transmission Date: 20170207
  Serious: Yes (Death, Hospitalization, Other)
  Sender: FDA-Public Use
  Company Number: ES-MYLANLABS-2016M1050738

PATIENT

DRUGS (3)
  1. PAROXETINE. [Suspect]
     Active Substance: PAROXETINE
     Dosage: 30MG DAILY
     Route: 065
  2. QUETIAPINE. [Suspect]
     Active Substance: QUETIAPINE
     Dosage: 25MG DAILY
     Route: 065
  3. FENTANYL. [Suspect]
     Active Substance: FENTANYL
     Route: 048

REACTIONS (4)
  - Renal failure [Unknown]
  - Cardio-respiratory arrest [Fatal]
  - Rhabdomyolysis [Unknown]
  - Serotonin syndrome [Unknown]
